FAERS Safety Report 16647735 (Version 1)
Quarter: 2019Q3

REPORT INFORMATION
  Report Type: Spontaneous
  Country: JP (occurrence: JP)
  Receive Date: 20190730
  Receipt Date: 20190730
  Transmission Date: 20191004
  Serious: Yes (Other)
  Sender: FDA-Public Use
  Company Number: JP-DSJP-DSJ-2019-128585AA

PATIENT

DRUGS (6)
  1. CONIEL [Suspect]
     Active Substance: BENIDIPINE HYDROCHLORIDE
     Dosage: 4MG/DAY
     Route: 048
  2. CONIEL [Suspect]
     Active Substance: BENIDIPINE HYDROCHLORIDE
     Dosage: 2MG/DAY
     Route: 048
  3. LOXONIN TAPE [Suspect]
     Active Substance: LOXOPROFEN SODIUM DIHYDRATE
     Dosage: UNK
     Route: 065
  4. OLMETEC OD [Suspect]
     Active Substance: OLMESARTAN MEDOXOMIL
     Dosage: 5MG/DAY
     Route: 048
  5. OLMETEC OD [Suspect]
     Active Substance: OLMESARTAN MEDOXOMIL
     Dosage: 2.5MG/DAY
     Route: 048
  6. OLMETEC OD [Suspect]
     Active Substance: OLMESARTAN MEDOXOMIL
     Indication: PRODUCT USED FOR UNKNOWN INDICATION
     Dosage: 10MG/DAY
     Route: 048

REACTIONS (6)
  - Renal neoplasm [Not Recovered/Not Resolved]
  - Blood creatine phosphokinase increased [Not Recovered/Not Resolved]
  - Haematuria [Not Recovered/Not Resolved]
  - Dizziness postural [Not Recovered/Not Resolved]
  - Blood creatinine increased [Not Recovered/Not Resolved]
  - Blood pressure increased [Not Recovered/Not Resolved]
